FAERS Safety Report 10835709 (Version 1)
Quarter: 2015Q1

REPORT INFORMATION
  Report Type: Report from Study
  Country: US (occurrence: US)
  Receive Date: 20150219
  Receipt Date: 20150219
  Transmission Date: 20150721
  Serious: No
  Sender: FDA-Public Use
  Company Number: US-ABBVIE-14P-163-1201418-00

PATIENT
  Age: 61 Year
  Sex: Female
  Weight: 72.64 kg

DRUGS (8)
  1. HUMIRA [Suspect]
     Active Substance: ADALIMUMAB
     Indication: CROHN^S DISEASE
     Route: 058
     Dates: start: 2013, end: 201311
  2. NEURONTIN [Concomitant]
     Active Substance: GABAPENTIN
     Indication: FIBROMYALGIA
  3. CYMBALTA [Concomitant]
     Active Substance: DULOXETINE HYDROCHLORIDE
     Indication: FIBROMYALGIA
  4. ESTRADIOL. [Concomitant]
     Active Substance: ESTRADIOL
     Indication: BLOOD OESTROGEN DECREASED
  5. LOPID [Concomitant]
     Active Substance: GEMFIBROZIL
     Indication: BLOOD CHOLESTEROL INCREASED
  6. NEURONTIN [Concomitant]
     Active Substance: GABAPENTIN
     Indication: NEUROPATHY PERIPHERAL
  7. CYMBALTA [Concomitant]
     Active Substance: DULOXETINE HYDROCHLORIDE
     Indication: NEUROPATHY PERIPHERAL
  8. DIOVAN [Concomitant]
     Active Substance: VALSARTAN
     Indication: HYPERTENSION

REACTIONS (3)
  - Abdominal pain [Not Recovered/Not Resolved]
  - Amnesia [Not Recovered/Not Resolved]
  - Diarrhoea [Not Recovered/Not Resolved]

NARRATIVE: CASE EVENT DATE: 201306
